FAERS Safety Report 8446639-8 (Version None)
Quarter: 2012Q2

REPORT INFORMATION
  Report Type: 
  Country: None (occurrence: None)
  Receive Date: 20120619
  Receipt Date: 20120612
  Transmission Date: 20120825
  Serious: No
  Sender: FDA-Public Use
  Company Number: US-BIOGENIDEC-2011BI035483

PATIENT
  Sex: Female

DRUGS (3)
  1. LISINOPRIL AND HYDROCHLOROTHIAZIDE [Concomitant]
     Indication: HYPERTENSION
     Dates: start: 20101201
  2. TYSABRI [Suspect]
     Route: 042
     Dates: start: 20110908
  3. TYSABRI [Suspect]
     Indication: MULTIPLE SCLEROSIS
     Route: 042
     Dates: start: 20100401, end: 20100723

REACTIONS (10)
  - URINARY TRACT INFECTION [None]
  - LYMPHADENOPATHY [None]
  - BLOOD PRESSURE DECREASED [None]
  - URTICARIA [None]
  - HYPERTENSION [None]
  - LYMPH NODE PAIN [None]
  - COGNITIVE DISORDER [None]
  - FATIGUE [None]
  - PAIN [None]
  - PAIN IN EXTREMITY [None]
